FAERS Safety Report 9118713 (Version 2)
Quarter: 2013Q1

REPORT INFORMATION
  Report Type: Spontaneous
  Country: NO (occurrence: None)
  Receive Date: 20130128
  Receipt Date: 20130204
  Transmission Date: 20140127
  Serious: Yes (Death, Other)
  Sender: FDA-Public Use
  Company Number: ACO_33880_2013

PATIENT
  Sex: Male

DRUGS (3)
  1. FAMPYRA (DALFAMPRIDINE) TABLET, 10MG [Suspect]
     Indication: RELAPSING-REMITTING MULTIPLE SCLEROSIS
     Dates: start: 201202
  2. FAMPYRA (DALFAMPRIDINE) TABLET, 10MG [Suspect]
     Indication: GAIT DISTURBANCE
     Dates: start: 201202
  3. BETAFERON (INTERFERON BETA-1B) [Concomitant]

REACTIONS (6)
  - Cardiac failure [None]
  - Pulmonary embolism [None]
  - Arrhythmia [None]
  - Palpitations [None]
  - Heart rate increased [None]
  - General physical health deterioration [None]
